FAERS Safety Report 25671114 (Version 1)
Quarter: 2025Q3

REPORT INFORMATION
  Report Type: Spontaneous
  Country: US (occurrence: US)
  Receive Date: 20250812
  Receipt Date: 20250812
  Transmission Date: 20251021
  Serious: Yes (Hospitalization, Other)
  Sender: CIPLA
  Company Number: US-CIPLA (EU) LIMITED-2025US09861

PATIENT

DRUGS (8)
  1. AMLODIPINE [Suspect]
     Active Substance: AMLODIPINE BESYLATE
     Route: 065
  2. ZOLPIDEM TARTRATE [Suspect]
     Active Substance: ZOLPIDEM TARTRATE
     Route: 065
  3. DAPSONE [Suspect]
     Active Substance: DAPSONE
     Route: 065
  4. CARVEDILOL [Suspect]
     Active Substance: CARVEDILOL
     Route: 065
  5. DIAZEPAM [Suspect]
     Active Substance: DIAZEPAM
     Route: 065
  6. METHOCARBAMOL [Suspect]
     Active Substance: METHOCARBAMOL
     Route: 065
  7. EZETIMIBE [Suspect]
     Active Substance: EZETIMIBE
     Route: 065
  8. TRIUMEQ [Suspect]
     Active Substance: ABACAVIR SULFATE\DOLUTEGRAVIR SODIUM\LAMIVUDINE
     Route: 065

REACTIONS (3)
  - Acute kidney injury [Unknown]
  - Intentional overdose [Unknown]
  - Hypotension [Recovering/Resolving]
